FAERS Safety Report 18440662 (Version 1)
Quarter: 2020Q4

REPORT INFORMATION
  Report Type: Spontaneous
  Country: SE (occurrence: SE)
  Receive Date: 20201029
  Receipt Date: 20201029
  Transmission Date: 20210114
  Serious: Yes (Life-Threatening, Hospitalization, Disabling)
  Sender: FDA-Public Use
  Company Number: SE-009507513-2010SWE010081

PATIENT
  Age: 53 Year
  Sex: Male

DRUGS (16)
  1. ATORVASTATIN [Concomitant]
     Active Substance: ATORVASTATIN
     Dosage: 80 MILLIGRAM, QD
     Dates: start: 2017, end: 20201002
  2. PROPAVAN [Concomitant]
     Active Substance: PROPIOMAZINE
     Dosage: 50 MILLIGRAM, QD  (2 FOR THE NIGHT)
     Dates: start: 2017, end: 20200926
  3. MELATONIN [Concomitant]
     Active Substance: MELATONIN
     Dosage: 10 MILLIGRAM, QD (5 FOR THE NIGHT)
     Dates: start: 2019, end: 20200926
  4. BUSPIRONE HYDROCHLORIDE. [Suspect]
     Active Substance: BUSPIRONE HYDROCHLORIDE
     Indication: POST-TRAUMATIC STRESS DISORDER
     Dosage: UNK
  5. TROMBYL [Concomitant]
     Active Substance: ASPIRIN
     Dosage: 75 MILLIGRAM, QD
     Dates: start: 2015, end: 20201002
  6. QUETIAPINE FUMARATE. [Suspect]
     Active Substance: QUETIAPINE FUMARATE
     Indication: SCHIZOAFFECTIVE DISORDER
     Dosage: 25 MG 2-4 FOR THE NIGHT, TABLETS
     Route: 048
     Dates: start: 2019, end: 20200926
  7. QUETIAPINE FUMARATE. [Suspect]
     Active Substance: QUETIAPINE FUMARATE
     Indication: POST-TRAUMATIC STRESS DISORDER
     Dosage: UNK
  8. BUSPIRONE HYDROCHLORIDE. [Suspect]
     Active Substance: BUSPIRONE HYDROCHLORIDE
     Indication: SCHIZOAFFECTIVE DISORDER
     Dosage: 60 MILLIGRAM, QD (10 MG 3X2), TABLETS
     Route: 048
     Dates: start: 2017, end: 20200926
  9. NOZINAN [Suspect]
     Active Substance: LEVOMEPROMAZINE
     Indication: SCHIZOAFFECTIVE DISORDER
     Dosage: 75 MILLIGRAM, QD (25 MG 3 FOR THE NIGHT)
     Route: 048
     Dates: start: 2018, end: 20200926
  10. MIRTAZAPINE. [Suspect]
     Active Substance: MIRTAZAPINE
     Indication: SCHIZOAFFECTIVE DISORDER
     Dosage: 45 MILLIGRAM, QD (30 MG 1.5 FOR THE NIGHT), FORMULATION REPORTED AS (T)
     Route: 048
     Dates: start: 2013, end: 20200926
  11. OLANZAPINE. [Suspect]
     Active Substance: OLANZAPINE
     Indication: SCHIZOAFFECTIVE DISORDER
     Dosage: 30 MILLIGRAM, QD, 10 MG 3 FOR THE NIGHT, FORMULATION REPORTED AS (T)
     Route: 048
     Dates: start: 2013, end: 20200926
  12. STESOLID [Concomitant]
     Active Substance: DIAZEPAM
     Dosage: PRN (1 ASNECESSARY), DOSE: 1 (UNIT UNKNOWN),  TAKEN UP TO 6 TABLETS PER DAY
     Dates: start: 2014, end: 20200926
  13. ZOPICLONE [Concomitant]
     Active Substance: ZOPICLONE
     Dosage: 7.5 MILLIGRAM, QD, 1 FOR THE NIGHT
     Dates: start: 2013, end: 20200926
  14. MIRTAZAPINE. [Suspect]
     Active Substance: MIRTAZAPINE
     Indication: POST-TRAUMATIC STRESS DISORDER
     Dosage: UNK
  15. OLANZAPINE. [Suspect]
     Active Substance: OLANZAPINE
     Indication: POST-TRAUMATIC STRESS DISORDER
     Dosage: UNK
  16. NOZINAN [Suspect]
     Active Substance: LEVOMEPROMAZINE
     Indication: POST-TRAUMATIC STRESS DISORDER
     Dosage: UNK

REACTIONS (3)
  - Accidental overdose [Not Recovered/Not Resolved]
  - Cerebrovascular accident [Not Recovered/Not Resolved]
  - Electrocardiogram QT prolonged [Not Recovered/Not Resolved]

NARRATIVE: CASE EVENT DATE: 20200926
